FAERS Safety Report 16653286 (Version 2)
Quarter: 2019Q3

REPORT INFORMATION
  Report Type: Report from Study
  Country: ES (occurrence: ES)
  Receive Date: 20190731
  Receipt Date: 20190816
  Transmission Date: 20191004
  Serious: Yes (Hospitalization, Other)
  Sender: FDA-Public Use
  Company Number: ES-PFIZER INC-2019321178

PATIENT
  Age: 80 Year
  Sex: Male
  Weight: 84 kg

DRUGS (4)
  1. SINTROM [Concomitant]
     Active Substance: ACENOCOUMAROL
     Indication: ATRIAL FIBRILLATION
     Dosage: 1 MG, 1X/DAY
     Route: 048
     Dates: start: 20071123
  2. DAURISMO [Suspect]
     Active Substance: GLASDEGIB
     Indication: MYELODYSPLASTIC SYNDROME
     Dosage: 100 MG, 1X/DAY
     Route: 048
     Dates: start: 20190628, end: 20190709
  3. EXJADE [Concomitant]
     Active Substance: DEFERASIROX
     Indication: IRON OVERLOAD
     Dosage: 1080 MG, 1X/DAY
     Route: 048
     Dates: start: 20181015
  4. DAURISMO [Suspect]
     Active Substance: GLASDEGIB
     Dosage: UNK
     Route: 048
     Dates: end: 20190723

REACTIONS (5)
  - Enterocolitis [Recovered/Resolved]
  - Pyrexia [Recovered/Resolved]
  - Leukopenia [Unknown]
  - Diarrhoea [Recovered/Resolved]
  - Anaemia [Unknown]

NARRATIVE: CASE EVENT DATE: 20190708
